FAERS Safety Report 25385566 (Version 1)
Quarter: 2025Q2

REPORT INFORMATION
  Report Type: Spontaneous
  Country: CN (occurrence: CN)
  Receive Date: 20250602
  Receipt Date: 20250602
  Transmission Date: 20250717
  Serious: Yes (Other)
  Sender: PFIZER
  Company Number: CN-PFIZER INC-PV202500064483

PATIENT
  Age: 15 Year
  Sex: Female

DRUGS (2)
  1. METHOTREXATE SODIUM [Suspect]
     Active Substance: METHOTREXATE SODIUM
     Indication: Acute lymphocytic leukaemia
     Dosage: 6 G, 1X/DAY
     Route: 041
     Dates: start: 20250513, end: 20250513
  2. MERCAPTOPURINE [Concomitant]
     Active Substance: MERCAPTOPURINE
     Indication: Chemotherapy
     Dosage: 50 MG, 1X/DAY
     Route: 048
     Dates: start: 20250513, end: 20250523

REACTIONS (2)
  - Blood creatinine increased [Recovered/Resolved]
  - Metabolic disorder [Unknown]

NARRATIVE: CASE EVENT DATE: 20250515
